FAERS Safety Report 7527304-8 (Version None)
Quarter: 2011Q2

REPORT INFORMATION
  Report Type: 
  Country: None (occurrence: None)
  Receive Date: 20110607
  Receipt Date: 20080918
  Transmission Date: 20111010
  Serious: Yes (Death, Hospitalization)
  Sender: FDA-Public Use
  Company Number: US-BAYER-200834016NA

PATIENT
  Age: 51 Year
  Sex: Male
  Weight: 100 kg

DRUGS (15)
  1. FENTANYL [Concomitant]
     Dosage: 5 ML
     Route: 042
     Dates: start: 20001113, end: 20001113
  2. VERSED [Concomitant]
     Dosage: 5 MG
     Route: 042
     Dates: start: 20001113, end: 20001113
  3. ALBUMIN [ALBUMEN] [Concomitant]
     Dosage: 500 ML
     Route: 042
     Dates: start: 20001113, end: 20001113
  4. TRASYLOL [Suspect]
     Indication: ARTERIAL REPAIR
  5. DIOVAN [Concomitant]
     Dosage: 80 MG, QD
     Route: 048
     Dates: start: 19780101
  6. ACETYLSALICYLIC ACID SRT [Concomitant]
     Dosage: 81 MG, QD
     Route: 048
  7. HEPARIN [Concomitant]
     Dosage: 28,000 UNITS
     Route: 042
     Dates: start: 20001113, end: 20001113
  8. ANCEF [Concomitant]
     Dosage: 1 GRAM
     Route: 042
     Dates: start: 20001113
  9. TRASYLOL [Suspect]
     Indication: CORONARY ARTERY BYPASS
     Dosage: UNK
     Route: 042
  10. EPINEPHRINE [Concomitant]
     Dosage: UNK
     Route: 042
     Dates: start: 20001113, end: 20001113
  11. PRIMACOR [Concomitant]
     Dosage: UNK
     Route: 042
     Dates: start: 20001113, end: 20001113
  12. PROTAMINE SULFATE [Concomitant]
     Dosage: 250 MG
     Route: 042
     Dates: start: 20001113, end: 20001113
  13. NEOSYNEPHRINE [Concomitant]
     Dosage: 150 MG
     Route: 042
     Dates: start: 20001113, end: 20001113
  14. CALCIUM CHLORIDE [Concomitant]
     Dosage: 1 GRAM
     Route: 042
     Dates: start: 20001113, end: 20001113
  15. ETOMIDATE [Concomitant]
     Dosage: 16 MG
     Route: 042
     Dates: start: 20001113, end: 20001113

REACTIONS (8)
  - PAIN [None]
  - UNEVALUABLE EVENT [None]
  - HEPATIC FAILURE [None]
  - ANHEDONIA [None]
  - EMOTIONAL DISTRESS [None]
  - RENAL FAILURE ACUTE [None]
  - RESPIRATORY FAILURE [None]
  - INJURY [None]
